FAERS Safety Report 12216843 (Version 1)
Quarter: 2016Q1

REPORT INFORMATION
  Report Type: Other
  Country: TR (occurrence: TR)
  Receive Date: 20160329
  Receipt Date: 20160329
  Transmission Date: 20160526
  Serious: Yes (Other)
  Sender: FDA-Public Use
  Company Number: TR-LUPIN PHARMACEUTICALS INC.-2016-01062

PATIENT
  Age: 37 Year
  Sex: Female

DRUGS (2)
  1. TOPIRAMATE. [Suspect]
     Active Substance: TOPIRAMATE
     Dosage: RODUCED DOSE
     Route: 065
  2. TOPIRAMATE. [Suspect]
     Active Substance: TOPIRAMATE
     Indication: MIGRAINE
     Route: 065

REACTIONS (3)
  - Anxiety [Recovered/Resolved]
  - Hallucination, auditory [Recovered/Resolved]
  - Depression [Recovered/Resolved]
